FAERS Safety Report 4677283-6 (Version None)
Quarter: 2005Q2

REPORT INFORMATION
  Report Type: 
  Country: None (occurrence: None)
  Receive Date: 20050526
  Receipt Date: 20050526
  Transmission Date: 20051028
  Serious: No
  Sender: FDA-Public Use
  Company Number: None

PATIENT
  Age: 38 Year
  Sex: Male
  Weight: 79.3795 kg

DRUGS (5)
  1. CAMPATH [Suspect]
     Indication: MULTIPLE SCLEROSIS
     Dosage: 24 MG IV
     Route: 042
  2. BENADRYL [Concomitant]
  3. DECADRON [Concomitant]
  4. DEXTROSE 5% [Concomitant]
  5. EPINEPHERINE [Concomitant]

REACTIONS (3)
  - CHEST DISCOMFORT [None]
  - CHILLS [None]
  - DYSPNOEA [None]
